FAERS Safety Report 8449912-2 (Version None)
Quarter: 2012Q2

REPORT INFORMATION
  Report Type: 
  Country: None (occurrence: None)
  Receive Date: 20120620
  Receipt Date: 20120613
  Transmission Date: 20120825
  Serious: No
  Sender: FDA-Public Use
  Company Number: PHHY2012BR049671

PATIENT
  Age: 72 Year
  Sex: Female

DRUGS (1)
  1. ONBREZ [Suspect]
     Dosage: 150 UG, UNK

REACTIONS (1)
  - MEDICATION ERROR [None]
